FAERS Safety Report 5934512-6 (Version None)
Quarter: 2008Q4

REPORT INFORMATION
  Report Type: 
  Country: None (occurrence: None)
  Receive Date: 20081029
  Receipt Date: 20081015
  Transmission Date: 20090506
  Serious: Yes (Hospitalization)
  Sender: FDA-Public Use
  Company Number: US-ELI_LILLY_AND_COMPANY-US200810004248

PATIENT
  Age: 31 Year
  Sex: Male

DRUGS (5)
  1. OLANZAPINE [Suspect]
     Indication: MANIA
     Dosage: 20 MG, DAILY (1/D)
  2. OLANZAPINE [Suspect]
     Dosage: 5 MG, DAILY (1/D)
  3. HALOPERIDOL [Concomitant]
     Indication: MANIA
  4. LITHIUM CARBONATE [Concomitant]
     Indication: MANIA
     Dosage: 1200 MG, UNK
  5. LITHIUM CARBONATE [Concomitant]
     Dosage: UNK, UNK

REACTIONS (5)
  - ANTIPHOSPHOLIPID SYNDROME [None]
  - BIPOLAR DISORDER [None]
  - PULMONARY EMBOLISM [None]
  - SEDATION [None]
  - SOMNOLENCE [None]
